FAERS Safety Report 6261350-X (Version None)
Quarter: 2009Q3

REPORT INFORMATION
  Report Type: 
  Country: None (occurrence: None)
  Receive Date: 20090707
  Receipt Date: 20090623
  Transmission Date: 20100115
  Serious: Yes (Hospitalization, Other)
  Sender: FDA-Public Use
  Company Number: IDR-00273

PATIENT
  Age: 71 Year
  Sex: Female

DRUGS (1)
  1. PROPRANOLOL [Suspect]
     Indication: CARDIAC DISORDER
     Dosage: 1  CAPSULE TWICE A DAY

REACTIONS (5)
  - ATRIAL FLUTTER [None]
  - BLOOD PRESSURE INCREASED [None]
  - EXTRASYSTOLES [None]
  - PALPITATIONS [None]
  - PRODUCT SUBSTITUTION ISSUE [None]
